FAERS Safety Report 8919948 (Version 1)
Quarter: 2012Q4

REPORT INFORMATION
  Report Type: 
  Country: JP (occurrence: JP)
  Receive Date: 20121121
  Receipt Date: 20121121
  Transmission Date: 20130627
  Serious: Yes (Death, Hospitalization)
  Sender: FDA-Public Use
  Company Number: JP-SANOFI-AVENTIS-2012SA082238

PATIENT
  Age: 77 Year
  Sex: Male

DRUGS (4)
  1. TAXOTERE [Suspect]
     Indication: PROSTATE CANCER
     Route: 042
     Dates: start: 20120510, end: 20121012
  2. DEXAMETHASONE SODIUM PHOSPHATE [Concomitant]
     Indication: PROSTATE CANCER
     Route: 065
     Dates: start: 20120402, end: 20121012
  3. LEUPLIN [Concomitant]
     Route: 065
     Dates: start: 20101111, end: 20120823
  4. ADALAT [Concomitant]
     Indication: PULMONARY OEDEMA

REACTIONS (1)
  - Interstitial lung disease [Fatal]
